FAERS Safety Report 25869122 (Version 1)
Quarter: 2025Q4

REPORT INFORMATION
  Report Type: Spontaneous
  Country: None (occurrence: None)
  Receive Date: 20251001
  Receipt Date: 20251001
  Transmission Date: 20260118
  Serious: Yes (Other)
  Sender: ORGANON
  Company Number: None

PATIENT
  Sex: Female

DRUGS (2)
  1. MONTELUKAST [Suspect]
     Active Substance: MONTELUKAST
     Dosage: UNK
  2. AMBROXOL\LEVOCETIRIZINE\MONTELUKAST [Suspect]
     Active Substance: AMBROXOL\LEVOCETIRIZINE\MONTELUKAST
     Indication: Asthma
     Dosage: UNK

REACTIONS (4)
  - Palpitations [Unknown]
  - Anxiety [Unknown]
  - Nightmare [Unknown]
  - Heart rate increased [Unknown]

NARRATIVE: CASE EVENT DATE: 20231001
